FAERS Safety Report 5653992-7 (Version None)
Quarter: 2008Q1

REPORT INFORMATION
  Report Type: 
  Country: None (occurrence: None)
  Receive Date: 20080306
  Receipt Date: 20080225
  Transmission Date: 20080703
  Serious: Yes (Other)
  Sender: FDA-Public Use
  Company Number: US-PFIZER INC-2008019602

PATIENT
  Sex: Female
  Weight: 59 kg

DRUGS (4)
  1. CELEBREX [Suspect]
     Indication: ARTHRITIS
  2. MOTRIN [Suspect]
     Indication: ARTHRITIS
     Route: 048
  3. IBUPROFEN [Suspect]
     Indication: ARTHRITIS
     Route: 048
  4. DRUG, UNSPECIFIED [Concomitant]

REACTIONS (4)
  - BREAST CANCER [None]
  - CHOKING [None]
  - DISCOMFORT [None]
  - PRURITUS [None]
